FAERS Safety Report 11855193 (Version 1)
Quarter: 2015Q4

REPORT INFORMATION
  Report Type: Spontaneous
  Country: US (occurrence: US)
  Receive Date: 20151221
  Receipt Date: 20151221
  Transmission Date: 20160305
  Serious: No
  Sender: FDA-Public Use
  Company Number: US-TEVA-579318USA

PATIENT
  Sex: Female
  Weight: 70.37 kg

DRUGS (1)
  1. METRONIDAZOLE. [Suspect]
     Active Substance: METRONIDAZOLE
     Indication: STAPHYLOCOCCAL INFECTION
     Dates: start: 20150710, end: 20150711

REACTIONS (3)
  - Asthma [Unknown]
  - Rash [Unknown]
  - Erythema [Unknown]
